FAERS Safety Report 12779273 (Version 1)
Quarter: 2016Q3

REPORT INFORMATION
  Report Type: Spontaneous
  Country: US (occurrence: US)
  Receive Date: 20160926
  Receipt Date: 20160926
  Transmission Date: 20161109
  Serious: No
  Sender: FDA-Public Use
  Company Number: US-JAZZ-2016-US-011344

PATIENT
  Sex: Female

DRUGS (11)
  1. XYREM [Suspect]
     Active Substance: SODIUM OXYBATE
     Indication: HYPERSOMNIA
     Dosage: 3 G, BID
     Route: 048
     Dates: start: 200308
  2. CLONAZEPAM. [Concomitant]
     Active Substance: CLONAZEPAM
  3. REMIFEMIN [Concomitant]
  4. PROBIOTIC ACIDOPHILUS [Concomitant]
     Active Substance: LACTOBACILLUS ACIDOPHILUS
  5. TOPAMAX [Concomitant]
     Active Substance: TOPIRAMATE
  6. IBUPROFEN. [Concomitant]
     Active Substance: IBUPROFEN
  7. ALLEGRA ALLERGY [Concomitant]
     Active Substance: FEXOFENADINE HYDROCHLORIDE
  8. FLONASE [Concomitant]
     Active Substance: FLUTICASONE PROPIONATE
  9. RESTASIS [Concomitant]
     Active Substance: CYCLOSPORINE
  10. NASACORT [Concomitant]
     Active Substance: TRIAMCINOLONE ACETONIDE
  11. CRANBERRY. [Concomitant]
     Active Substance: CRANBERRY

REACTIONS (1)
  - Hypertension [Not Recovered/Not Resolved]
